FAERS Safety Report 5562720-5 (Version None)
Quarter: 2007Q4

REPORT INFORMATION
  Report Type: 
  Country: None (occurrence: None)
  Receive Date: 20071217
  Receipt Date: 20071212
  Transmission Date: 20080405
  Serious: Yes (Death, Other)
  Sender: FDA-Public Use
  Company Number: PHBS2007JP11344

PATIENT
  Age: 74 Year
  Sex: Female

DRUGS (3)
  1. ZOMETA [Suspect]
     Dosage: UNK, UNK
     Route: 042
  2. AREDIA [Suspect]
     Dosage: UNK, UNK
     Route: 042
  3. MEDROXYPROGESTERONE ACETATE [Concomitant]

REACTIONS (9)
  - CEREBRAL HAEMORRHAGE [None]
  - EXCESSIVE GRANULATION TISSUE [None]
  - EXCORIATION [None]
  - GINGIVAL EROSION [None]
  - IMPAIRED HEALING [None]
  - OSTEONECROSIS [None]
  - PRIMARY SEQUESTRUM [None]
  - TOOTH EXTRACTION [None]
  - WOUND DEBRIDEMENT [None]
